FAERS Safety Report 7055766-1 (Version None)
Quarter: 2010Q4

REPORT INFORMATION
  Report Type: 
  Country: None (occurrence: None)
  Receive Date: 20101021
  Receipt Date: 20101011
  Transmission Date: 20110411
  Serious: Yes (Hospitalization)
  Sender: FDA-Public Use
  Company Number: DK-JNJFOC-20100608248

PATIENT
  Sex: Female
  Weight: 100 kg

DRUGS (7)
  1. REMICADE [Suspect]
     Indication: RHEUMATOID ARTHRITIS
     Route: 042
  2. OMEPRAZOLE [Concomitant]
     Indication: DYSPEPSIA
  3. METHOTREXATE [Concomitant]
     Indication: RHEUMATOID ARTHRITIS
  4. FOLIMET [Concomitant]
     Indication: VITAMIN SUPPLEMENTATION
     Route: 048
  5. CENTYL [Concomitant]
     Indication: HYPERTENSION
     Route: 048
  6. AMLODIPINE [Concomitant]
     Indication: HYPERTENSION
  7. CENTYL MED KALIUMKLORID (BENDROFLUMETHIAZID, KALIUMKLORID) [Concomitant]
     Indication: HYPERTENSION
     Route: 048

REACTIONS (1)
  - ENDOMETRIAL CANCER [None]
